FAERS Safety Report 16827730 (Version 5)
Quarter: 2020Q1

REPORT INFORMATION
  Report Type: Spontaneous
  Country: US (occurrence: US)
  Receive Date: 20190919
  Receipt Date: 20200317
  Transmission Date: 20200409
  Serious: Yes (Other)
  Sender: FDA-Public Use
  Company Number: US-PFIZER INC-2019401855

PATIENT
  Age: 67 Year
  Sex: Male
  Weight: 73.48 kg

DRUGS (2)
  1. XELJANZ [Suspect]
     Active Substance: TOFACITINIB CITRATE
     Dosage: 5 MG, 2X/DAY
     Route: 048
     Dates: start: 2019
  2. XELJANZ [Suspect]
     Active Substance: TOFACITINIB CITRATE
     Indication: COLITIS ULCERATIVE
     Dosage: 10 MG, 2X/DAY

REACTIONS (9)
  - Intentional product use issue [Unknown]
  - Malaise [Unknown]
  - Visual impairment [Unknown]
  - Abdominal pain upper [Unknown]
  - Nasopharyngitis [Not Recovered/Not Resolved]
  - Sinusitis [Unknown]
  - Influenza [Unknown]
  - Drug dependence [Unknown]
  - Nausea [Unknown]

NARRATIVE: CASE EVENT DATE: 20200225
